FAERS Safety Report 7982127-0 (Version None)
Quarter: 2011Q4

REPORT INFORMATION
  Report Type: 
  Country: None (occurrence: None)
  Receive Date: 20111215
  Receipt Date: 20111214
  Transmission Date: 20120403
  Serious: No
  Sender: FDA-Public Use
  Company Number: US-PFIZER INC-2011304919

PATIENT
  Sex: Female
  Weight: 63.5 kg

DRUGS (5)
  1. LISINOPRIL [Concomitant]
     Dosage: UNK
  2. CHANTIX [Suspect]
     Indication: SMOKING CESSATION THERAPY
     Dosage: 0.5 MG, 1X/DAY
     Route: 048
     Dates: start: 20110101, end: 20110101
  3. LORTAB [Concomitant]
     Indication: MYOFASCIAL PAIN SYNDROME
     Dosage: UNK
  4. CELEXA [Concomitant]
     Dosage: UNK
  5. ACETYLSALICYLIC ACID [Concomitant]
     Dosage: UNK

REACTIONS (1)
  - NAUSEA [None]
